FAERS Safety Report 8068662-8 (Version None)
Quarter: 2012Q1

REPORT INFORMATION
  Report Type: 
  Country: None (occurrence: None)
  Receive Date: 20120124
  Receipt Date: 20111118
  Transmission Date: 20120608
  Serious: No
  Sender: FDA-Public Use
  Company Number: US-AMGEN-USASP2011061137

PATIENT
  Sex: Female

DRUGS (8)
  1. PROLIA [Suspect]
     Indication: OSTEOPOROSIS POSTMENOPAUSAL
     Dosage: 60 MG, Q6MO
     Dates: start: 20100101
  2. IBUPROFEN (ADVIL) [Concomitant]
     Dosage: UNK
  3. NEXIUM [Concomitant]
     Dosage: 1 UNK, QD
  4. CALCIUM [Concomitant]
     Dosage: UNK
  5. ANTIHYPERTENSIVES [Concomitant]
     Dosage: UNK
  6. VITAMIN D [Concomitant]
     Dosage: UNK
  7. MULTIVITAMIN [Concomitant]
     Dosage: UNK
  8. METOPROLOL TARTRATE [Concomitant]
     Dosage: UNK

REACTIONS (3)
  - ARTIFICIAL CROWN PROCEDURE [None]
  - ENDODONTIC PROCEDURE [None]
  - THERAPEUTIC RESPONSE INCREASED [None]
